FAERS Safety Report 13102498 (Version 1)
Quarter: 2017Q1

REPORT INFORMATION
  Report Type: Spontaneous
  Country: US (occurrence: US)
  Receive Date: 20170110
  Receipt Date: 20170110
  Transmission Date: 20170428
  Serious: No
  Sender: FDA-Public Use
  Company Number: PHEH2017US000961

PATIENT
  Age: 75 Year
  Sex: Male
  Weight: 94.34 kg

DRUGS (1)
  1. ENTRESTO [Suspect]
     Active Substance: SACUBITRIL\VALSARTAN
     Indication: CARDIAC FAILURE CONGESTIVE
     Dosage: 50 MG, QD
     Route: 048
     Dates: start: 20161019, end: 20161214

REACTIONS (3)
  - Visual acuity reduced [Unknown]
  - Prescribed underdose [Unknown]
  - Muscular weakness [Unknown]
